FAERS Safety Report 6567486-8 (Version None)
Quarter: 2010Q1

REPORT INFORMATION
  Report Type: 
  Country: None (occurrence: None)
  Receive Date: 20100202
  Receipt Date: 20100119
  Transmission Date: 20100710
  Serious: Yes (Other)
  Sender: FDA-Public Use
  Company Number: GB-JNJFOC-20100200296

PATIENT

DRUGS (1)
  1. ACETAMINOPHEN W/ CODEINE TAB [Suspect]
     Indication: DRUG USE FOR UNKNOWN INDICATION
     Dosage: 4-10 TABLETS
     Route: 065

REACTIONS (5)
  - DEAFNESS NEUROSENSORY [None]
  - INCORRECT DOSE ADMINISTERED [None]
  - MACROCYTOSIS [None]
  - MEDICATION ERROR [None]
  - TINNITUS [None]
